FAERS Safety Report 22066228 (Version 1)
Quarter: 2023Q1

REPORT INFORMATION
  Report Type: Spontaneous
  Country: US (occurrence: None)
  Receive Date: 20230306
  Receipt Date: 20230306
  Transmission Date: 20230417
  Serious: Yes (unspecified)
  Sender: FDA-Public Use
  Company Number: None

PATIENT
  Age: 68 Year
  Sex: Female
  Weight: 99 kg

DRUGS (25)
  1. LEVOFLOXACIN [Suspect]
     Active Substance: LEVOFLOXACIN
     Indication: Respiratory disorder
     Dosage: FREQUENCY : DAILY;?
     Route: 048
  2. LEVOFLOXACIN [Suspect]
     Active Substance: LEVOFLOXACIN
     Indication: Bronchial disorder
  3. REPATHA [Concomitant]
     Active Substance: EVOLOCUMAB
  4. SureClick [Concomitant]
  5. SYNTHROID [Concomitant]
     Active Substance: LEVOTHYROXINE SODIUM
  6. LORAZEPAM [Concomitant]
     Active Substance: LORAZEPAM
  7. PLAVIX [Concomitant]
     Active Substance: CLOPIDOGREL BISULFATE
  8. ELIQUIS [Concomitant]
     Active Substance: APIXABAN
  9. METOPROLOL SUCCINATE [Concomitant]
     Active Substance: METOPROLOL SUCCINATE
  10. TRIAMERTERENE [Concomitant]
  11. HYDROCHLOROTHIAZIDE [Concomitant]
     Active Substance: HYDROCHLOROTHIAZIDE
  12. NYSTATIN [Concomitant]
     Active Substance: NYSTATIN
  13. MULTI-VITAMIN [Concomitant]
     Active Substance: .ALPHA.-TOCOPHEROL ACETATE, DL-\ASCORBIC ACID\CYANOCOBALAMIN\FLUORIDE ION\FOLIC ACID\NIACIN\PYRIDOXI
  14. PARAFFIN [Concomitant]
     Active Substance: PARAFFIN
  15. CALCIUM [Concomitant]
     Active Substance: CALCIUM
  16. VITAMIN D [Concomitant]
     Active Substance: VITAMIN D NOS
  17. PANTOPRAZOLE [Concomitant]
     Active Substance: PANTOPRAZOLE
  18. BENEFIBER [Concomitant]
     Active Substance: STARCH, WHEAT
  19. NITROSTAT [Concomitant]
     Active Substance: NITROGLYCERIN
  20. MUCINEX [Concomitant]
     Active Substance: GUAIFENESIN
  21. TYLENOL [Concomitant]
     Active Substance: ACETAMINOPHEN
  22. NASONEX [Concomitant]
     Active Substance: MOMETASONE FUROATE
  23. LORATADINE [Concomitant]
     Active Substance: LORATADINE
  24. CALCIUM [Concomitant]
     Active Substance: CALCIUM
  25. LORATADINE [Concomitant]
     Active Substance: LORATADINE

REACTIONS (4)
  - Pain in extremity [None]
  - Arthralgia [None]
  - Arthralgia [None]
  - Tendonitis [None]

NARRATIVE: CASE EVENT DATE: 20220813
